FAERS Safety Report 9413775 (Version 1)
Quarter: 2013Q3

REPORT INFORMATION
  Report Type: Spontaneous
  Country: US (occurrence: None)
  Receive Date: 20130705
  Receipt Date: 20130705
  Transmission Date: 20140515
  Serious: Yes (Hospitalization, Other)
  Sender: FDA-Public Use
  Company Number: 09-AUR-10247

PATIENT
  Age: 79 Year
  Sex: Female

DRUGS (5)
  1. PAROXETINE (PAROXETINE) [Suspect]
     Indication: DEPRESSION
     Route: 048
  2. MIRTAZAPINE (MIRTAZAPINE) [Suspect]
     Indication: PRODUCT USED FOR UNKNOWN INDICATION
     Route: 048
  3. AMLODIPINE (AMLODIPINE) [Concomitant]
  4. DONEPEZIL (DONEPEZIL) [Concomitant]
  5. ACETAMINOPHEN (PARACETAMOL) [Concomitant]

REACTIONS (16)
  - Confusional state [None]
  - Body temperature increased [None]
  - Chills [None]
  - Immobile [None]
  - Urinary incontinence [None]
  - Tremor [None]
  - Hyperhidrosis [None]
  - Mental status changes [None]
  - Muscular weakness [None]
  - Serotonin syndrome [None]
  - Rhabdomyolysis [None]
  - Agitation [None]
  - Renal disorder [None]
  - Decreased appetite [None]
  - Meningitis [None]
  - Delirium [None]
